FAERS Safety Report 6438345-6 (Version None)
Quarter: 2009Q4

REPORT INFORMATION
  Report Type: 
  Country: None (occurrence: None)
  Receive Date: 20091112
  Receipt Date: 20081013
  Transmission Date: 20100525
  Serious: No
  Sender: FDA-Public Use
  Company Number: US-ASTRAZENECA-2009UW15507

PATIENT
  Age: 65 Year
  Sex: Male

DRUGS (3)
  1. PRILOSEC OTC [Suspect]
     Indication: DYSPEPSIA
     Dosage: 1 TABLET, 1 /DAY
     Route: 048
     Dates: start: 20071013, end: 20081012
  2. LIPITOR [Concomitant]
     Dosage: UNKNOWN
  3. BABY ASPIRIN [Concomitant]
     Dosage: UNKNOWN

REACTIONS (1)
  - SKIN DISORDER [None]
